FAERS Safety Report 25066298 (Version 1)
Quarter: 2025Q1

REPORT INFORMATION
  Report Type: Spontaneous
  Country: ES (occurrence: ES)
  Receive Date: 20250312
  Receipt Date: 20250312
  Transmission Date: 20250408
  Serious: Yes (Other)
  Sender: ROCHE
  Company Number: None

PATIENT
  Age: 46 Year
  Sex: Female

DRUGS (1)
  1. TRASTUZUMAB [Suspect]
     Active Substance: TRASTUZUMAB
     Indication: Invasive ductal breast carcinoma
     Route: 065

REACTIONS (4)
  - Granulomatous lymphadenitis [Unknown]
  - Hilar lymphadenopathy [Unknown]
  - Pulmonary mass [Unknown]
  - Lymphadenopathy mediastinal [Unknown]
